FAERS Safety Report 11519917 (Version 1)
Quarter: 2015Q3

REPORT INFORMATION
  Report Type: Spontaneous
  Country: US (occurrence: None)
  Receive Date: 20150917
  Receipt Date: 20150917
  Transmission Date: 20151125
  Serious: Yes (Disabling, Other)
  Sender: FDA-Public Use
  Company Number: None

PATIENT
  Age: 63 Year
  Sex: Female
  Weight: 58.97 kg

DRUGS (7)
  1. AMITRIPTYLINE [Concomitant]
     Active Substance: AMITRIPTYLINE
  2. CYCLOBENZAPRINE [Concomitant]
     Active Substance: CYCLOBENZAPRINE
  3. CLONIDINE TRANSDERMAL SYSTEM [Suspect]
     Active Substance: CLONIDINE
     Indication: DRUG WITHDRAWAL SYNDROME
     Dosage: 0.1 MG/DAY?4 PATCHES?1 PATCH WEEKLY?ON SKIN
     Route: 061
     Dates: start: 20141101, end: 20141128
  4. ALPRAZOLAM. [Concomitant]
     Active Substance: ALPRAZOLAM
  5. METOPROLOL ER [Concomitant]
     Active Substance: METOPROLOL SUCCINATE
  6. ONE A DAY MULTIVITAMIN + MULTIMNERAL SUPPLEMENT [Concomitant]
  7. VITAMIN C W/ROSEHIPS [Concomitant]

REACTIONS (13)
  - Diarrhoea [None]
  - Abdominal distension [None]
  - Sleep disorder [None]
  - Depression [None]
  - Condition aggravated [None]
  - Visual acuity reduced [None]
  - Constipation [None]
  - Migraine [None]
  - Social avoidant behaviour [None]
  - Insomnia [None]
  - Anxiety [None]
  - Drug ineffective [None]
  - Vision blurred [None]

NARRATIVE: CASE EVENT DATE: 20141118
